FAERS Safety Report 10025660 (Version 1)
Quarter: 2014Q1

REPORT INFORMATION
  Report Type: Spontaneous
  Country: IN (occurrence: None)
  Receive Date: 20140314
  Receipt Date: 20140314
  Transmission Date: 20141002
  Serious: Yes (Death, Life-Threatening, Hospitalization)
  Sender: FDA-Public Use
  Company Number: 2014P1001973

PATIENT
  Age: 25 Year
  Sex: Male
  Weight: 45 kg

DRUGS (6)
  1. ETHAMBUTOL [Suspect]
     Indication: TUBERCULOSIS
  2. LEVOFLOXACIN [Suspect]
     Indication: TUBERCULOSIS
  3. CYCLOSERINE [Suspect]
     Indication: TUBERCULOSIS
  4. PYRAZINAMIDE [Concomitant]
  5. PYRIDOXINE [Concomitant]
  6. ALPRAZOLAM [Concomitant]

REACTIONS (11)
  - Suicide attempt [None]
  - Insomnia [None]
  - Anxiety [None]
  - Acne [None]
  - Tinnitus [None]
  - Speech disorder [None]
  - Hallucination, visual [None]
  - Toxicity to various agents [None]
  - Shock haemorrhagic [None]
  - Multiple injuries [None]
  - Completed suicide [None]
